FAERS Safety Report 8286202-5 (Version None)
Quarter: 2012Q2

REPORT INFORMATION
  Report Type: 
  Country: None (occurrence: None)
  Receive Date: 20120416
  Receipt Date: 20120411
  Transmission Date: 20120825
  Serious: No
  Sender: FDA-Public Use
  Company Number: US-PFIZER INC-2012090478

PATIENT

DRUGS (2)
  1. ZOLOFT [Suspect]
  2. NORVASC [Suspect]

REACTIONS (1)
  - DEPRESSED MOOD [None]
